FAERS Safety Report 24899726 (Version 1)
Quarter: 2025Q1

REPORT INFORMATION
  Report Type: Spontaneous
  Country: DK (occurrence: DK)
  Receive Date: 20250129
  Receipt Date: 20250129
  Transmission Date: 20250409
  Serious: Yes (Life-Threatening, Hospitalization, Other)
  Sender: PFIZER
  Company Number: DK-ORIFARM-032501

PATIENT
  Age: 69 Year
  Sex: Male

DRUGS (8)
  1. BOSUTINIB [Suspect]
     Active Substance: BOSUTINIB
     Indication: Chronic myeloid leukaemia
     Dates: end: 20241228
  2. IBUPROFEN [Suspect]
     Active Substance: IBUPROFEN
     Indication: Chronic myeloid leukaemia
     Route: 048
  3. ROPEGINTERFERON ALFA-2B [Suspect]
     Active Substance: ROPEGINTERFERON ALFA-2B
     Indication: Chronic myeloid leukaemia
     Dates: end: 20241228
  4. GABAPENTIN [Concomitant]
     Active Substance: GABAPENTIN
     Indication: Pain
     Dates: start: 20221102
  5. MORPHINE SULFATE [Concomitant]
     Active Substance: MORPHINE SULFATE
     Indication: Pain
     Dates: start: 20200416
  6. PINEX [Concomitant]
     Indication: Pain
     Dates: start: 20120213
  7. ALLOPURINOL [Concomitant]
     Active Substance: ALLOPURINOL
     Indication: Gout
     Dates: start: 20221108
  8. ARANESP [Concomitant]
     Active Substance: DARBEPOETIN ALFA
     Indication: Anaemia
     Dates: start: 20241125

REACTIONS (1)
  - Hyperkalaemia [Recovered/Resolved]

NARRATIVE: CASE EVENT DATE: 20241227
